FAERS Safety Report 7079788-X (Version None)
Quarter: 2010Q4

REPORT INFORMATION
  Report Type: 
  Country: None (occurrence: None)
  Receive Date: 20101102
  Receipt Date: 20101026
  Transmission Date: 20110411
  Serious: Yes (Other)
  Sender: FDA-Public Use
  Company Number: US-PFIZER INC-2010081679

PATIENT
  Sex: Female
  Weight: 69.8 kg

DRUGS (4)
  1. ESTRING [Suspect]
     Indication: ATROPHIC VULVOVAGINITIS
     Dosage: UNK
     Dates: start: 20100615
  2. PREMARIN [Suspect]
     Indication: ATROPHIC VULVOVAGINITIS
     Dosage: 0.3 MG, UNK
     Route: 048
  3. CRESTOR [Suspect]
     Indication: HYPERLIPIDAEMIA
     Dosage: 5 MG, 2X/WEEK
     Route: 048
     Dates: start: 20100318, end: 20100701
  4. SYNTHROID [Concomitant]
     Dosage: UNK

REACTIONS (4)
  - BLOOD GLUCOSE INCREASED [None]
  - MEMORY IMPAIRMENT [None]
  - SPEECH DISORDER [None]
  - VISION BLURRED [None]
